FAERS Safety Report 17503161 (Version 1)
Quarter: 2020Q1

REPORT INFORMATION
  Report Type: Spontaneous
  Country: US (occurrence: US)
  Receive Date: 20200305
  Receipt Date: 20200305
  Transmission Date: 20200409
  Serious: No
  Sender: FDA-Public Use
  Company Number: US-ROCHE-2285469

PATIENT
  Age: 5 Year
  Sex: Female
  Weight: 29.51 kg

DRUGS (1)
  1. XOLAIR [Suspect]
     Active Substance: OMALIZUMAB
     Indication: PRODUCT USED FOR UNKNOWN INDICATION
     Dosage: OTHER FORMULATION;
     Route: 058
     Dates: start: 20181201, end: 20190301

REACTIONS (3)
  - Drug ineffective [Unknown]
  - No adverse event [Unknown]
  - Product quality issue [Unknown]
